FAERS Safety Report 7299686-6 (Version None)
Quarter: 2011Q1

REPORT INFORMATION
  Report Type: 
  Country: None (occurrence: None)
  Receive Date: 20110217
  Receipt Date: 20110209
  Transmission Date: 20110831
  Serious: Yes (Other)
  Sender: FDA-Public Use
  Company Number: JP-CEPHALON-2010006271

PATIENT
  Sex: Female

DRUGS (4)
  1. MODAFINIL [Suspect]
     Indication: NARCOLEPSY
     Route: 048
     Dates: start: 20070523, end: 20080225
  2. ANAFRANIL [Concomitant]
     Route: 048
     Dates: start: 19990601
  3. HALCION [Concomitant]
     Dates: start: 20050113
  4. RITALIN [Concomitant]
     Dates: start: 19990601

REACTIONS (1)
  - HALLUCINATION, AUDITORY [None]
